FAERS Safety Report 4320408-2 (Version None)
Quarter: 2004Q1

REPORT INFORMATION
  Report Type: 
  Country: None (occurrence: None)
  Receive Date: 20040317
  Receipt Date: 20040302
  Transmission Date: 20041129
  Serious: Yes (Hospitalization)
  Sender: FDA-Public Use
  Company Number: US-SHR-03-011015

PATIENT
  Age: 54 Year
  Sex: Female
  Weight: 63.5 kg

DRUGS (9)
  1. BETASERON [Suspect]
     Indication: MULTIPLE SCLEROSIS
     Dosage: 8  MIU, EVERY 2D, SUBCUTANEOUS
     Route: 058
     Dates: start: 20000517
  2. ATENOLOL [Concomitant]
  3. ZANAFLEX [Concomitant]
  4. KLONOPIN [Concomitant]
  5. PEMOLINE [Concomitant]
  6. ANUSOL  /USA/ (ZINC OXIDE, PRAMOCAINE HYDROCHLORIDE, PARAFFIN, LIQUID) [Concomitant]
  7. FLONASE [Concomitant]
  8. PREMARIN [Concomitant]
  9. BACLOFEN [Concomitant]

REACTIONS (10)
  - CATHETER RELATED INFECTION [None]
  - COLONIC POLYP [None]
  - CONFUSIONAL STATE [None]
  - DISORIENTATION [None]
  - FACIAL PALSY [None]
  - HYPOKALAEMIA [None]
  - HYPONATRAEMIA [None]
  - IRON DEFICIENCY ANAEMIA [None]
  - SYNCOPE [None]
  - URINARY TRACT INFECTION [None]
